FAERS Safety Report 11687389 (Version 2)
Quarter: 2015Q4

REPORT INFORMATION
  Report Type: Spontaneous
  Country: FR (occurrence: FR)
  Receive Date: 20151030
  Receipt Date: 20151127
  Transmission Date: 20160304
  Serious: Yes (Death, Other)
  Sender: FDA-Public Use
  Company Number: FR-BRISTOL-MYERS SQUIBB COMPANY-BMS-2015-073280

PATIENT
  Age: 51 Year
  Sex: Male

DRUGS (21)
  1. LOXEN                              /00639802/ [Concomitant]
     Active Substance: NICARDIPINE
     Indication: PRODUCT USED FOR UNKNOWN INDICATION
     Dosage: 100 MG, QD
     Route: 065
  2. PENTACARINAT [Concomitant]
     Active Substance: PENTAMIDINE ISETHIONATE
     Indication: PRODUCT USED FOR UNKNOWN INDICATION
     Route: 065
  3. ORACILLINE                         /00001801/ [Concomitant]
     Active Substance: PENICILLIN V
     Indication: BRONCHITIS
     Dosage: 3 MILLION UNIT, QD
     Route: 065
  4. NOVONORM [Concomitant]
     Active Substance: REPAGLINIDE
     Indication: PRODUCT USED FOR UNKNOWN INDICATION
     Dosage: 1 UNIT, TID
     Route: 065
  5. CELLCEPT [Concomitant]
     Active Substance: MYCOPHENOLATE MOFETIL\MYCOPHENOLATE MOFETIL HYDROCHLORIDE
     Indication: PRODUCT USED FOR UNKNOWN INDICATION
     Dosage: 500 MG, QD
     Route: 065
  6. FLUCONAZOLE. [Concomitant]
     Active Substance: FLUCONAZOLE
     Indication: PRODUCT USED FOR UNKNOWN INDICATION
     Dosage: 200 MG, QD
     Route: 065
  7. ESOMEPRAZOLE [Concomitant]
     Active Substance: ESOMEPRAZOLE
     Indication: PRODUCT USED FOR UNKNOWN INDICATION
     Dosage: 20 MG, QD
     Route: 065
  8. VISTIDE [Concomitant]
     Active Substance: CIDOFOVIR
     Indication: CYSTITIS
     Dosage: 5 MG/KG, UNK
     Route: 065
     Dates: start: 20150423
  9. NIVOLUMAB BMS [Suspect]
     Active Substance: NIVOLUMAB
     Indication: HODGKIN^S DISEASE
     Dosage: 3 MG/KG, 2 TIMES/WK
     Route: 042
     Dates: start: 20150605
  10. NIVOLUMAB BMS [Suspect]
     Active Substance: NIVOLUMAB
     Indication: HODGKIN^S DISEASE NODULAR SCLEROSIS
  11. CACIT D3 [Concomitant]
     Active Substance: CALCIUM\CHOLECALCIFEROL
     Indication: PRODUCT USED FOR UNKNOWN INDICATION
     Dosage: 1 UNK, UNK
     Route: 065
  12. CORTANCYL [Concomitant]
     Active Substance: PREDNISONE
     Dosage: 10 MG, QD
     Route: 065
  13. NEORAL [Concomitant]
     Active Substance: CYCLOSPORINE
     Dosage: 50 MG, UNK
     Route: 065
  14. ZELITREX [Concomitant]
     Active Substance: VALACYCLOVIR HYDROCHLORIDE
     Indication: PRODUCT USED FOR UNKNOWN INDICATION
     Dosage: 1000 MG, QD
     Route: 065
  15. DELURSAN [Concomitant]
     Active Substance: URSODIOL
     Indication: PRODUCT USED FOR UNKNOWN INDICATION
     Dosage: 250 MG, TID
     Route: 065
     Dates: start: 20150617
  16. AMOXICILLINA E ACIDO CLAVULANICO MYLAN [Suspect]
     Active Substance: AMOXICILLIN\CLAVULANIC ACID
     Indication: INFECTION
     Dosage: 1 UNIT, TID
     Route: 048
     Dates: start: 20150605
  17. CORTANCYL [Concomitant]
     Active Substance: PREDNISONE
     Indication: PRODUCT USED FOR UNKNOWN INDICATION
     Dosage: 40 MG, QD
     Route: 065
  18. CORTANCYL [Concomitant]
     Active Substance: PREDNISONE
     Dosage: 30 MG, QD
     Route: 065
  19. NEORAL [Concomitant]
     Active Substance: CYCLOSPORINE
     Indication: PRODUCT USED FOR UNKNOWN INDICATION
     Dosage: 100 MG, BID
     Route: 065
  20. ORELOX [Concomitant]
     Active Substance: CEFPODOXIME
     Indication: BRONCHITIS
     Route: 065
  21. LANTUS [Concomitant]
     Active Substance: INSULIN GLARGINE
     Indication: PRODUCT USED FOR UNKNOWN INDICATION
     Route: 065

REACTIONS (8)
  - Acute kidney injury [Fatal]
  - Staphylococcal sepsis [None]
  - Respiratory failure [None]
  - Sepsis [Unknown]
  - Off label use [Unknown]
  - Haemodialysis [None]
  - Neurological decompensation [None]
  - Graft versus host disease in gastrointestinal tract [Unknown]

NARRATIVE: CASE EVENT DATE: 20150615
